FAERS Safety Report 9808504 (Version 3)
Quarter: 2014Q3

REPORT INFORMATION
  Report Type: Spontaneous
  Country: US (occurrence: US)
  Receive Date: 20140110
  Receipt Date: 20140724
  Transmission Date: 20150326
  Serious: Yes (Hospitalization, Other)
  Sender: FDA-Public Use
  Company Number: US-009507513-1401USA002777

PATIENT
  Sex: Female

DRUGS (1)
  1. NUVARING [Suspect]
     Active Substance: ETHINYL ESTRADIOL\ETONOGESTREL
     Indication: CONTRACEPTION
     Dosage: 1 VAGINAL RING X 3 WKS
     Route: 067
     Dates: start: 20100929, end: 201102

REACTIONS (8)
  - Deep vein thrombosis [Unknown]
  - Abortion induced [Unknown]
  - Haemangioma of liver [Unknown]
  - Lymphadenopathy [Unknown]
  - Localised infection [Unknown]
  - Pain in extremity [Recovered/Resolved]
  - Pulmonary embolism [Unknown]
  - Keratomileusis [Unknown]

NARRATIVE: CASE EVENT DATE: 2011
